FAERS Safety Report 5860144-4 (Version None)
Quarter: 2008Q3

REPORT INFORMATION
  Report Type: 
  Country: None (occurrence: None)
  Receive Date: 20080827
  Receipt Date: 20080817
  Transmission Date: 20090109
  Serious: Yes (Other)
  Sender: FDA-Public Use
  Company Number: US-PFIZER INC-2008069571

PATIENT
  Sex: Female
  Weight: 63.5 kg

DRUGS (6)
  1. AZITHROMYCIN [Suspect]
     Indication: WISDOM TEETH REMOVAL
  2. ANAESTHETICS [Suspect]
     Indication: WISDOM TEETH REMOVAL
     Dates: start: 20080813, end: 20080813
  3. SYNTHROID [Concomitant]
  4. KETOROLAC TROMETHAMINE [Concomitant]
  5. VICODIN [Concomitant]
     Dates: start: 20080813
  6. GAS-X [Concomitant]

REACTIONS (8)
  - DIARRHOEA [None]
  - ERYTHEMA [None]
  - HAEMATEMESIS [None]
  - HEADACHE [None]
  - NAUSEA [None]
  - STOMACH DISCOMFORT [None]
  - SYNCOPE [None]
  - TREMOR [None]
